FAERS Safety Report 9725310 (Version 1)
Quarter: 2013Q4

REPORT INFORMATION
  Report Type: Spontaneous
  Country: GR (occurrence: GR)
  Receive Date: 20131203
  Receipt Date: 20131203
  Transmission Date: 20140711
  Serious: Yes (Hospitalization)
  Sender: FDA-Public Use
  Company Number: GR-MYLANLABS-2013S1026295

PATIENT
  Age: 64 Year
  Sex: Male

DRUGS (3)
  1. INFLIXIMAB [Suspect]
     Indication: PSORIASIS
     Dosage: 5 MG/KG
     Route: 041
  2. METHOTREXATE [Suspect]
     Indication: PSORIASIS
     Dosage: TWO WEEKLY DOSES OF 10MG
     Route: 065
  3. MIRTAZAPINE [Concomitant]
     Indication: DEPRESSION
     Dosage: 30 MG/D
     Route: 048

REACTIONS (4)
  - Interstitial lung disease [Recovering/Resolving]
  - Respiratory failure [Recovering/Resolving]
  - Cardiac failure [Recovering/Resolving]
  - Drug ineffective [Unknown]
